FAERS Safety Report 7998956-3 (Version None)
Quarter: 2011Q4

REPORT INFORMATION
  Report Type: 
  Country: None (occurrence: None)
  Receive Date: 20111221
  Receipt Date: 20111212
  Transmission Date: 20120403
  Serious: Yes (Other)
  Sender: FDA-Public Use
  Company Number: CHPA2011US017970

PATIENT
  Age: 34 Year
  Sex: Female

DRUGS (2)
  1. EXCEDRIN (MIGRAINE) [Suspect]
     Dosage: 2 DF, ONCE/SINGLE
     Route: 048
     Dates: start: 20111209, end: 20111209
  2. EXCEDRIN (MIGRAINE) [Suspect]
     Indication: MIGRAINE
     Dosage: 3 DF, ONCE/SINGLE
     Route: 048
     Dates: start: 20111210, end: 20111210

REACTIONS (6)
  - DELIRIUM [None]
  - VOMITING [None]
  - BLOOD GLUCOSE INCREASED [None]
  - INCORRECT DOSE ADMINISTERED [None]
  - DIZZINESS [None]
  - NAUSEA [None]
